FAERS Safety Report 19554502 (Version 7)
Quarter: 2025Q1

REPORT INFORMATION
  Report Type: Spontaneous
  Country: US (occurrence: US)
  Receive Date: 20210715
  Receipt Date: 20250129
  Transmission Date: 20250408
  Serious: No
  Sender: VERTEX
  Company Number: US-VERTEX PHARMACEUTICALS-2021-010350

PATIENT
  Sex: Male
  Weight: 79 kg

DRUGS (4)
  1. TRIKAFTA [Suspect]
     Active Substance: ELEXACAFTOR\IVACAFTOR\TEZACAFTOR
     Indication: Cystic fibrosis
     Dosage: 2 ORANGE TABS(100MG ELEXACAFTOR/50MG TEZACAFTOR/75MG IVACAFTOR)AM;1 BLUE TAB(150MG IVACAFTOR)PM
     Route: 048
     Dates: start: 20191031
  2. TRIKAFTA [Suspect]
     Active Substance: ELEXACAFTOR\IVACAFTOR\TEZACAFTOR
     Dosage: ORANGE PILL ONCE A DAY
     Route: 048
  3. TRIKAFTA [Suspect]
     Active Substance: ELEXACAFTOR\IVACAFTOR\TEZACAFTOR
     Dosage: 1 ORANGE PILL IN AM AND 1 ORANGE PILL AT PM
     Route: 048
     Dates: start: 20221026
  4. TRIKAFTA [Suspect]
     Active Substance: ELEXACAFTOR\IVACAFTOR\TEZACAFTOR
     Dosage: 2 ORANGE TABLETS IN THE MORNING AND 1 LIGHT BLUE TABLET IN THE EVENING
     Route: 048
     Dates: start: 202412

REACTIONS (11)
  - Depression [Recovered/Resolved]
  - Anger [Not Recovered/Not Resolved]
  - Impulse-control disorder [Recovered/Resolved]
  - Anxiety [Recovered/Resolved]
  - Visual impairment [Unknown]
  - Apathy [Recovering/Resolving]
  - Feeling abnormal [Not Recovered/Not Resolved]
  - Agitation [Recovering/Resolving]
  - Mental disorder [Recovered/Resolved]
  - Screaming [Recovering/Resolving]
  - Abnormal behaviour [Recovering/Resolving]

NARRATIVE: CASE EVENT DATE: 20190101
